FAERS Safety Report 9474385 (Version 1)
Quarter: 2013Q3

REPORT INFORMATION
  Report Type: Spontaneous
  Country: FR (occurrence: FR)
  Receive Date: 20130823
  Receipt Date: 20130823
  Transmission Date: 20140515
  Serious: Yes (Hospitalization)
  Sender: FDA-Public Use
  Company Number: FR-PFIZER INC-2013241534

PATIENT
  Age: 57 Year
  Sex: Male

DRUGS (13)
  1. TRIATEC [Suspect]
     Dosage: 7.5 MG, DAILY
     Route: 048
     Dates: start: 201102, end: 20120219
  2. NUROFEN [Interacting]
     Dosage: UNK
     Route: 048
     Dates: start: 20120209, end: 20120214
  3. AUGMENTIN [Interacting]
     Indication: BRONCHITIS
     Dosage: UNK
     Route: 048
     Dates: start: 20120213
  4. KARDEGIC [Concomitant]
     Dosage: UNK
  5. PLAVIX [Concomitant]
     Dosage: UNK
  6. TAHOR [Concomitant]
     Dosage: UNK
  7. AMLOR [Concomitant]
     Dosage: UNK
  8. ZOLOFT [Concomitant]
     Dosage: UNK
  9. THERALENE [Concomitant]
     Dosage: UNK
  10. SERESTA [Concomitant]
     Dosage: UNK
  11. ZYPREXA [Concomitant]
     Dosage: UNK
  12. BISOPROLOL [Concomitant]
     Dosage: UNK
  13. ZOLPIDEM [Concomitant]
     Dosage: UNK

REACTIONS (5)
  - Fall [Unknown]
  - Renal failure acute [Recovered/Resolved]
  - Thirst [Recovered/Resolved]
  - Blood creatinine increased [Recovered/Resolved]
  - Drug interaction [Recovered/Resolved]
